FAERS Safety Report 5189921-2 (Version None)
Quarter: 2006Q4

REPORT INFORMATION
  Report Type: 
  Country: None (occurrence: None)
  Receive Date: 20061215
  Receipt Date: 20061208
  Transmission Date: 20070319
  Serious: Yes (Hospitalization)
  Sender: FDA-Public Use
  Company Number: 2006150637

PATIENT
  Age: 17 Year
  Sex: Female

DRUGS (8)
  1. PSEUDOEPHEDRINE HCL [Suspect]
     Indication: INTENTIONAL OVERDOSE
     Dosage: 900 MG - 15 TABLETS ONCE (1   IN 1 D), ORAL
     Route: 048
     Dates: start: 20061015, end: 20061015
  2. IBUPROFEN [Suspect]
     Indication: INTENTIONAL OVERDOSE
     Dosage: 20 TABLETS (4,000 MG), ONCE (1 IN 1 D), ORAL
     Route: 048
     Dates: start: 20061015, end: 20061015
  3. XANAX [Suspect]
     Indication: INTENTIONAL OVERDOSE
     Dosage: 2.5 GRAMS ONCE (2.5 GRAM, 1 IN 1 D), ORAL
     Route: 048
     Dates: start: 20061015, end: 20061015
  4. ACETAMINOPHEN [Suspect]
     Indication: INTENTIONAL OVERDOSE
     Dosage: 2.5 GRAMS ONCE (2.5 GRAM, 1 IN 1 D), ORAL
     Route: 048
     Dates: start: 20061015, end: 20061015
  5. SAVARINE (CHLOROQUINE, PROGUANIL HYDROCHLORIDE) [Suspect]
     Indication: INTENTIONAL OVERDOSE
     Dosage: 1 IN 1 D, ORAL
     Route: 048
     Dates: start: 20061015, end: 20061015
  6. RODOGYL (METRONIDAZOLE, SPIRAMYCIN) [Suspect]
     Indication: INTENTIONAL OVERDOSE
     Dosage: ONCE 1 IN 1 D, ORAL
     Route: 048
     Dates: start: 20061015, end: 20061015
  7. VOLTAREN [Suspect]
     Indication: INTENTIONAL OVERDOSE
     Dosage: 250 MG ONCE (1 IN 1 D), ORAL
     Route: 048
     Dates: start: 20061015, end: 20061015
  8. ACECLOFENAC (ACECLOFENAC) [Suspect]
     Indication: INTENTIONAL OVERDOSE
     Dosage: 14 UNITS ONCE (1 IN 1 D), ORAL
     Route: 048
     Dates: start: 20061015, end: 20061015

REACTIONS (6)
  - ASTHENIA [None]
  - DIARRHOEA [None]
  - MULTIPLE DRUG OVERDOSE INTENTIONAL [None]
  - NAUSEA [None]
  - PALLOR [None]
  - VOMITING [None]
